FAERS Safety Report 6267434-4 (Version None)
Quarter: 2009Q3

REPORT INFORMATION
  Report Type: 
  Country: None (occurrence: None)
  Receive Date: 20090710
  Receipt Date: 20090626
  Transmission Date: 20100115
  Serious: Yes (Other)
  Sender: FDA-Public Use
  Company Number: 2007-03735

PATIENT
  Age: 73 Year
  Sex: Male
  Weight: 72 kg

DRUGS (5)
  1. VELCADE [Suspect]
     Indication: MULTIPLE MYELOMA
     Dosage: 2.3 MG, INTRAVENOUS; 2.20 MG, INTRAVENOUS; 1.7 MG, INTRAVENOUS; 2.2 MG, INTRAVENOUS
     Route: 042
     Dates: start: 20070528, end: 20070607
  2. VELCADE [Suspect]
     Indication: MULTIPLE MYELOMA
     Dosage: 2.3 MG, INTRAVENOUS; 2.20 MG, INTRAVENOUS; 1.7 MG, INTRAVENOUS; 2.2 MG, INTRAVENOUS
     Route: 042
     Dates: start: 20070618, end: 20070628
  3. VELCADE [Suspect]
     Indication: MULTIPLE MYELOMA
     Dosage: 2.3 MG, INTRAVENOUS; 2.20 MG, INTRAVENOUS; 1.7 MG, INTRAVENOUS; 2.2 MG, INTRAVENOUS
     Route: 042
     Dates: start: 20070727, end: 20070806
  4. VELCADE [Suspect]
     Indication: MULTIPLE MYELOMA
     Dosage: 2.3 MG, INTRAVENOUS; 2.20 MG, INTRAVENOUS; 1.7 MG, INTRAVENOUS; 2.2 MG, INTRAVENOUS
     Route: 042
     Dates: start: 20070820, end: 20071026
  5. DEXAMETHASONE TAB [Suspect]
     Indication: MULTIPLE MYELOMA
     Dosage: 20 MG, INTRAVENOUS
     Route: 042
     Dates: start: 20070528, end: 20070629

REACTIONS (5)
  - ANAEMIA [None]
  - BLOOD LACTATE DEHYDROGENASE INCREASED [None]
  - LEUKOCYTOSIS [None]
  - LUNG DISORDER [None]
  - PLATELET COUNT DECREASED [None]
